FAERS Safety Report 4634892-8 (Version None)
Quarter: 2005Q2

REPORT INFORMATION
  Report Type: 
  Country: None (occurrence: None)
  Receive Date: 20050412
  Receipt Date: 20050330
  Transmission Date: 20051028
  Serious: Yes (Hospitalization)
  Sender: FDA-Public Use
  Company Number: 2005051682

PATIENT
  Age: 85 Year
  Sex: Male
  Weight: 70 kg

DRUGS (12)
  1. AMLODIPINE [Suspect]
     Indication: ILL-DEFINED DISORDER
     Dosage: 10 MG (1 IN 1 D), ORAL
     Route: 048
  2. HYDROCHLOROTHIAZIDE [Suspect]
     Indication: ILL-DEFINED DISORDER
     Dosage: 2 DOSE-FROMS (1 IN 1 D), ORAL
     Route: 048
  3. ACEBUTOLOL [Suspect]
     Indication: ILL-DEFINED DISORDER
     Dosage: 200 MG ( 1 IN 1 D), ORAL
     Route: 048
  4. RAMIPRIL [Suspect]
     Indication: ILL-DEFINED DISORDER
     Dosage: 2.5 MG (1 IN 1 D), ORAL
     Route: 048
  5. RILMENIDINE [Suspect]
     Indication: ILL-DEFINED DISORDER
     Dosage: 1 DOSE FORM (1 IN 1 D), ORAL
     Route: 048
  6. TAMSULOSIN HCL [Suspect]
     Indication: ILL-DEFINED DISORDER
     Dosage: 1 DOSE FORM (1  IN 1 D), ORAL
     Route: 048
     Dates: start: 20040715, end: 20050101
  7. CLOPIDOGREL BISULFATE [Concomitant]
  8. BETATHISTINE HYDROCHLORIDE             (BETAHISTINE HYDROCHLORIDE) [Concomitant]
  9. RISEDRONATE SODIUM       (RISEDRONATE SODIUM) [Concomitant]
  10. PREDNISONE [Concomitant]
  11. DUTASTERIDE (DUTASTERIDE) [Concomitant]
  12. INITARD (INSULIN) [Concomitant]

REACTIONS (15)
  - ANAEMIA [None]
  - AUTONOMIC NERVOUS SYSTEM IMBALANCE [None]
  - BLOOD PRESSURE DIASTOLIC DECREASED [None]
  - BLOOD PRESSURE SYSTOLIC INCREASED [None]
  - CARDIAC MURMUR [None]
  - CAROTID ARTERY STENOSIS [None]
  - CONTUSION [None]
  - DRUG INTERACTION [None]
  - FALL [None]
  - HEAD INJURY [None]
  - HEART RATE DECREASED [None]
  - LOSS OF CONSCIOUSNESS [None]
  - MALAISE [None]
  - RENAL FAILURE [None]
  - WOUND [None]
